FAERS Safety Report 15630907 (Version 1)
Quarter: 2018Q4

REPORT INFORMATION
  Report Type: Other
  Country: ES (occurrence: ES)
  Receive Date: 20181119
  Receipt Date: 20181119
  Transmission Date: 20190205
  Serious: Yes (Hospitalization, Other)
  Sender: FDA-Public Use
  Company Number: ES-APOTEX-2018AP024828

PATIENT
  Age: 50 Year
  Sex: Female

DRUGS (9)
  1. LORMETAZEPAM [Suspect]
     Active Substance: LORMETAZEPAM
     Indication: SUICIDE ATTEMPT
     Dosage: 25 COMP DE 2 MG ; IN TOTAL
     Route: 065
     Dates: start: 20170919, end: 20170919
  2. AIRFLUSAL FORSPIRO [Concomitant]
     Active Substance: FLUTICASONE PROPIONATE\SALMETEROL XINAFOATE
     Indication: PRODUCT USED FOR UNKNOWN INDICATION
     Dosage: 1-0-1
     Route: 055
     Dates: start: 20130101
  3. VENLAFAXIN [Concomitant]
     Active Substance: VENLAFAXINE HYDROCHLORIDE
     Indication: PRODUCT USED FOR UNKNOWN INDICATION
     Dosage: 300 MG, QD
     Route: 048
     Dates: start: 20161209
  4. LORAZEPAM. [Suspect]
     Active Substance: LORAZEPAM
     Indication: SUICIDE ATTEMPT
     Dosage: 25 CPS DE 1 MG ; IN TOTAL
     Route: 048
     Dates: start: 20170919, end: 20170919
  5. LYRICA [Concomitant]
     Active Substance: PREGABALIN
     Indication: PRODUCT USED FOR UNKNOWN INDICATION
     Dosage: 1-0-1
     Route: 048
     Dates: start: 20161209
  6. EKLIRA GENUAIR [Concomitant]
     Active Substance: ACLIDINIUM BROMIDE
     Indication: PRODUCT USED FOR UNKNOWN INDICATION
     Dosage: 1-0-1
     Route: 055
     Dates: start: 20140212
  7. LISINOPRIL AND HYDROCHLOROTHIAZIDE [Concomitant]
     Active Substance: HYDROCHLOROTHIAZIDE\LISINOPRIL
     Indication: HYPERTENSION
     Dosage: 1-0-0
     Route: 048
     Dates: start: 20070101
  8. QUETIAPINE. [Suspect]
     Active Substance: QUETIAPINE
     Indication: SUICIDE ATTEMPT
     Dosage: 25MG, 69 COMP ; IN TOTAL
     Route: 048
     Dates: start: 20170919, end: 20170919
  9. AGOMELATIN [Concomitant]
     Active Substance: AGOMELATINE
     Indication: PRODUCT USED FOR UNKNOWN INDICATION
     Dosage: 25MG 0-0-1
     Route: 048

REACTIONS (2)
  - Depressed level of consciousness [Recovered/Resolved]
  - Hepatitis [Recovered/Resolved]

NARRATIVE: CASE EVENT DATE: 20170919
